FAERS Safety Report 10488233 (Version 5)
Quarter: 2015Q1

REPORT INFORMATION
  Report Type: Report from Study
  Country: AT (occurrence: AT)
  Receive Date: 20141002
  Receipt Date: 20150119
  Transmission Date: 20150720
  Serious: Yes (Death, Hospitalization)
  Sender: FDA-Public Use
  Company Number: AT-ROCHE-1459930

PATIENT
  Age: 58 Year
  Sex: Female
  Weight: 64 kg

DRUGS (78)
  1. RITUXIMAB [Suspect]
     Active Substance: RITUXIMAB
     Route: 058
     Dates: start: 20130902
  2. RITUXIMAB [Suspect]
     Active Substance: RITUXIMAB
     Route: 058
     Dates: start: 20140805, end: 20140905
  3. RITUXIMAB [Suspect]
     Active Substance: RITUXIMAB
     Dosage: LAST DOSE PRIOR TO SAE: 05/AUG/2014
     Route: 058
     Dates: start: 20130313, end: 20140906
  4. VOLTAREN [Concomitant]
     Active Substance: DICLOFENAC SODIUM
     Route: 065
     Dates: start: 20131220
  5. NEULASTA [Concomitant]
     Active Substance: PEGFILGRASTIM
     Route: 065
     Dates: start: 20130414, end: 20130414
  6. ZOVIRAX [Concomitant]
     Active Substance: ACYCLOVIR
     Route: 065
     Dates: start: 20131123, end: 20131123
  7. SODIUM CHLORIDE. [Concomitant]
     Active Substance: SODIUM CHLORIDE
     Route: 065
     Dates: start: 20131212, end: 20131213
  8. SODIUM CHLORIDE. [Concomitant]
     Active Substance: SODIUM CHLORIDE
     Route: 065
     Dates: start: 20140906, end: 20140906
  9. RITUXIMAB [Suspect]
     Active Substance: RITUXIMAB
     Route: 058
     Dates: start: 20130507
  10. SEROPRAM (AUSTRIA) [Concomitant]
     Route: 065
     Dates: start: 20140218
  11. FENISTIL (AUSTRIA) [Concomitant]
     Route: 065
     Dates: start: 20130606, end: 20130703
  12. NEULASTA [Concomitant]
     Active Substance: PEGFILGRASTIM
     Route: 065
     Dates: start: 20130507, end: 20130507
  13. NEUPOGEN [Concomitant]
     Active Substance: FILGRASTIM
     Dosage: 48 MIO IU
     Route: 065
     Dates: start: 20130912, end: 20130916
  14. SODIUM CHLORIDE. [Concomitant]
     Active Substance: SODIUM CHLORIDE
     Route: 065
     Dates: start: 20131216, end: 20131216
  15. TRAMAL RETARD [Concomitant]
     Active Substance: TRAMADOL
     Route: 065
     Dates: start: 20131221, end: 20131223
  16. SAROTEN [Concomitant]
     Active Substance: AMITRIPTYLINE
     Route: 065
     Dates: start: 20131223
  17. EBRANTIL RETARD [Concomitant]
     Indication: HYPERTENSION
     Route: 065
     Dates: start: 20131218
  18. DIPIDOLOR [Concomitant]
     Active Substance: PIRITRAMIDE
     Indication: PAIN
     Route: 065
     Dates: start: 20131123, end: 20131123
  19. REFOBACIN [Concomitant]
     Route: 065
     Dates: start: 20140701
  20. RITUXIMAB [Suspect]
     Active Substance: RITUXIMAB
     Indication: B-CELL LYMPHOMA
     Route: 058
     Dates: start: 20130410
  21. RITUXIMAB [Suspect]
     Active Substance: RITUXIMAB
     Route: 058
     Dates: start: 20131217
  22. FENISTIL (AUSTRIA) [Concomitant]
     Route: 065
     Dates: start: 20130606, end: 20130703
  23. NEULASTA [Concomitant]
     Active Substance: PEGFILGRASTIM
     Indication: PROPHYLAXIS
     Route: 065
     Dates: start: 20130318, end: 20130418
  24. ZOVIRAX [Concomitant]
     Active Substance: ACYCLOVIR
     Route: 065
     Dates: start: 20131106, end: 20131112
  25. ZOVIRAX [Concomitant]
     Active Substance: ACYCLOVIR
     Route: 065
     Dates: start: 20131126, end: 20131206
  26. SODIUM CHLORIDE. [Concomitant]
     Active Substance: SODIUM CHLORIDE
     Route: 065
     Dates: start: 20131214, end: 20131217
  27. NEURONTIN (AUSTRIA) [Concomitant]
     Indication: NEURALGIA
     Route: 065
     Dates: start: 20131105, end: 20131105
  28. NEURONTIN (AUSTRIA) [Concomitant]
     Route: 065
     Dates: start: 20131108, end: 20131211
  29. RITUXIMAB [Suspect]
     Active Substance: RITUXIMAB
     Route: 058
     Dates: start: 20130930
  30. NEULIN [Concomitant]
     Route: 065
     Dates: start: 20131123
  31. SODIUM CHLORIDE. [Concomitant]
     Active Substance: SODIUM CHLORIDE
     Route: 065
     Dates: start: 20131106, end: 20131112
  32. SODIUM CHLORIDE. [Concomitant]
     Active Substance: SODIUM CHLORIDE
     Route: 065
     Dates: start: 20131124, end: 20131206
  33. SODIUM CHLORIDE. [Concomitant]
     Active Substance: SODIUM CHLORIDE
     Route: 065
     Dates: start: 20131212, end: 20131213
  34. TRAMAL RETARD [Concomitant]
     Active Substance: TRAMADOL
     Route: 065
     Dates: start: 20131106, end: 20131212
  35. NEURONTIN (AUSTRIA) [Concomitant]
     Route: 065
     Dates: start: 20131106, end: 20131107
  36. TEGRETOL [Concomitant]
     Active Substance: CARBAMAZEPINE
     Indication: DEPRESSION
     Route: 065
     Dates: start: 20131213, end: 20140101
  37. CETIRIZIN [Concomitant]
     Indication: PROPHYLAXIS
     Route: 065
     Dates: start: 20130930
  38. RITUXIMAB [Suspect]
     Active Substance: RITUXIMAB
     Route: 058
     Dates: start: 20130702
  39. FENISTIL (AUSTRIA) [Concomitant]
     Indication: PROPHYLAXIS
     Route: 065
     Dates: start: 20130313, end: 20130902
  40. MEFENAMIC-ACID [Concomitant]
     Active Substance: MEFENAMIC ACID
     Indication: PROPHYLAXIS
     Route: 065
     Dates: start: 20130313
  41. ZOFRAN [Concomitant]
     Active Substance: ONDANSETRON HYDROCHLORIDE
     Indication: PROPHYLAXIS
     Route: 065
     Dates: start: 20130314, end: 20130903
  42. ZOFRAN [Concomitant]
     Active Substance: ONDANSETRON HYDROCHLORIDE
     Indication: NAUSEA
     Route: 065
     Dates: start: 20130410, end: 20130730
  43. XEFO [Concomitant]
     Active Substance: LORNOXICAM
     Route: 065
     Dates: start: 20131110, end: 20131211
  44. NORVASC [Concomitant]
     Active Substance: AMLODIPINE BESYLATE
     Indication: HYPERTENSION
     Route: 065
     Dates: start: 20131216, end: 20131216
  45. DALACIN [Concomitant]
     Active Substance: CLINDAMYCIN\CLINDAMYCIN PHOSPHATE
  46. HEXORAL (AUSTRIA) [Concomitant]
     Indication: PROPHYLAXIS
     Dosage: 5 TABLE SPOONS
     Route: 065
     Dates: start: 20130314, end: 20130930
  47. MYCOSTATIN [Concomitant]
     Active Substance: NYSTATIN
     Indication: PROPHYLAXIS
     Dosage: 4 TABLE SPOONS
     Route: 065
     Dates: start: 20130314, end: 20130930
  48. SEROPRAM (AUSTRIA) [Concomitant]
     Indication: DEPRESSION
     Route: 065
     Dates: start: 200404, end: 20131212
  49. NEULASTA [Concomitant]
     Active Substance: PEGFILGRASTIM
     Route: 065
     Dates: start: 20130604, end: 20130604
  50. NEUPOGEN [Concomitant]
     Active Substance: FILGRASTIM
     Indication: NEUTROPENIA
     Dosage: 48 MIO IU
     Route: 065
     Dates: start: 20130820, end: 20130823
  51. NEUPOGEN [Concomitant]
     Active Substance: FILGRASTIM
     Dosage: 30 MIO IU
     Route: 065
     Dates: start: 20131125, end: 20131125
  52. ZOVIRAX [Concomitant]
     Active Substance: ACYCLOVIR
     Route: 065
     Dates: start: 20131124, end: 20131124
  53. SODIUM CHLORIDE. [Concomitant]
     Active Substance: SODIUM CHLORIDE
     Route: 065
     Dates: start: 20131105, end: 20131105
  54. XEFO [Concomitant]
     Active Substance: LORNOXICAM
     Indication: PAIN
     Route: 065
     Dates: start: 20131108, end: 20131110
  55. SAROTEN [Concomitant]
     Active Substance: AMITRIPTYLINE
     Indication: DEPRESSION
     Route: 065
     Dates: start: 20131213, end: 20131222
  56. LOVENOX [Concomitant]
     Active Substance: ENOXAPARIN SODIUM
     Indication: PROPHYLAXIS
     Route: 065
     Dates: start: 20131214, end: 20131220
  57. CALCIUM GLYCEROPHOSPHATE\CELLULOSE\POLYETHYLENE GLYCOL\SACCHARIN SODIUM\SODIUM HYDROXIDE\SODIUM LAURYL SULFATE\SODIUM MAGNESIUM SILICATE\SODIUM MONOFLUOROPHOSPHATE\SORBITOL\WATER [Concomitant]
     Active Substance: CALCIUM GLYCEROPHOSPHATE\POLYETHYLENE GLYCOLS\POWDERED CELLULOSE\SACCHARIN SODIUM DIHYDRATE\SODIUM HYDROXIDE\SODIUM LAURYL SULFATE\SODIUM MAGNESIUM SILICATE\SODIUM MONOFLUOROPHOSPHATE\SORBITOL\WATER
     Indication: CONSTIPATION
     Route: 065
     Dates: start: 20131212, end: 20131212
  58. RITUXIMAB [Suspect]
     Active Substance: RITUXIMAB
     Route: 058
     Dates: start: 20130604
  59. RITUXIMAB [Suspect]
     Active Substance: RITUXIMAB
     Route: 058
     Dates: start: 20131028
  60. RITUXIMAB [Suspect]
     Active Substance: RITUXIMAB
     Route: 058
     Dates: start: 20140218
  61. RITUXIMAB [Suspect]
     Active Substance: RITUXIMAB
     Route: 058
     Dates: start: 20140410
  62. CITALOPRAM [Concomitant]
     Active Substance: CITALOPRAM HYDROBROMIDE
     Route: 065
     Dates: start: 20130313
  63. NEUPOGEN [Concomitant]
     Active Substance: FILGRASTIM
     Dosage: 48 MIO IU
     Route: 065
     Dates: start: 20130905, end: 20130907
  64. NEUPOGEN [Concomitant]
     Active Substance: FILGRASTIM
     Dosage: 48 MIO IU
     Route: 065
     Dates: start: 20131126, end: 20131127
  65. SODIUM CHLORIDE. [Concomitant]
     Active Substance: SODIUM CHLORIDE
     Route: 065
     Dates: start: 20131123, end: 20131123
  66. TRAMAL RETARD [Concomitant]
     Active Substance: TRAMADOL
     Indication: PAIN
     Route: 065
     Dates: start: 20131105, end: 20131105
  67. NEURONTIN (AUSTRIA) [Concomitant]
     Route: 065
     Dates: start: 20131212, end: 20140207
  68. NEURONTIN (AUSTRIA) [Concomitant]
     Route: 065
     Dates: start: 20140208
  69. MEDITONSIN [Concomitant]
     Indication: COUGH
     Route: 065
     Dates: start: 20131007, end: 20131013
  70. LOVENOX [Concomitant]
     Active Substance: ENOXAPARIN SODIUM
     Route: 065
     Dates: start: 20140906, end: 20140906
  71. DIPIDOLOR [Concomitant]
     Active Substance: PIRITRAMIDE
     Route: 065
     Dates: start: 20140906, end: 20140906
  72. RITUXIMAB [Suspect]
     Active Substance: RITUXIMAB
     Indication: B-CELL LYMPHOMA
     Route: 042
     Dates: start: 20130313
  73. RITUXIMAB [Suspect]
     Active Substance: RITUXIMAB
     Route: 058
     Dates: start: 20140605
  74. ACC BRAUSETABLETTEN [Concomitant]
     Route: 065
     Dates: start: 20140605
  75. RATIOGRASTIM [Concomitant]
     Active Substance: FILGRASTIM
     Indication: NEUTROPENIA
     Dosage: 30 MIO IU
     Route: 065
     Dates: start: 20130730, end: 20130801
  76. ZOVIRAX [Concomitant]
     Active Substance: ACYCLOVIR
     Indication: HERPES ZOSTER
     Route: 065
     Dates: start: 20131105, end: 20131105
  77. VALTREX [Concomitant]
     Active Substance: VALACYCLOVIR HYDROCHLORIDE
     Indication: HERPES ZOSTER
     Route: 065
     Dates: start: 20131113, end: 20131120
  78. OXYNORM [Concomitant]
     Active Substance: OXYCODONE HYDROCHLORIDE
     Indication: PAIN
     Route: 065
     Dates: start: 20131214, end: 20131214

REACTIONS (2)
  - Septic shock [Fatal]
  - Myocarditis [Fatal]

NARRATIVE: CASE EVENT DATE: 20140906
